FAERS Safety Report 17452419 (Version 2)
Quarter: 2020Q1

REPORT INFORMATION
  Report Type: Spontaneous
  Country: US (occurrence: US)
  Receive Date: 20200224
  Receipt Date: 20200304
  Transmission Date: 20200409
  Serious: Yes (Other)
  Sender: FDA-Public Use
  Company Number: US-PFIZER INC-2020080170

PATIENT
  Sex: Female
  Weight: 61.23 kg

DRUGS (5)
  1. PREMARIN [Suspect]
     Active Substance: ESTROGENS, CONJUGATED
     Dosage: 0.3 MG, 1X/DAY (0.3MG TABLET ONCE DAILY BY MOUTH)
     Route: 048
  2. PREMARIN [Suspect]
     Active Substance: ESTROGENS, CONJUGATED
     Dosage: 2 MG, 1X/DAY (2MG TABLET BY MOUTH ONCE DAILY )
     Route: 048
  3. PREMARIN [Suspect]
     Active Substance: ESTROGENS, CONJUGATED
     Dosage: 0.6 MG, 1X/DAY (0.6MG TABLET ONCE DAILY BY MOUTH )
     Route: 048
  4. PREMARIN [Suspect]
     Active Substance: ESTROGENS, CONJUGATED
     Indication: HOT FLUSH
     Dosage: UNK
     Dates: start: 1985
  5. PREMARIN [Suspect]
     Active Substance: ESTROGENS, CONJUGATED
     Dosage: 0.45 MG, 1X/DAY (0.45MG TABLET TAKEN BY MOUTH ONCE DAILY )
     Route: 048

REACTIONS (6)
  - Off label use [Unknown]
  - Feeling abnormal [Unknown]
  - Memory impairment [Recovered/Resolved]
  - Sleep disorder [Recovered/Resolved]
  - Body height decreased [Unknown]
  - Crying [Recovered/Resolved]
